FAERS Safety Report 14819379 (Version 1)
Quarter: 2018Q2

REPORT INFORMATION
  Report Type: Report from Study
  Country: US (occurrence: US)
  Receive Date: 20180427
  Receipt Date: 20180427
  Transmission Date: 20180711
  Serious: Yes (Other)
  Sender: FDA-Public Use
  Company Number: US-TESARO, INC-US-2017TSO04571

PATIENT

DRUGS (5)
  1. ZEJULA [Suspect]
     Active Substance: NIRAPARIB
     Dosage: 300 MG, QD
     Route: 048
     Dates: start: 20171221, end: 20171228
  2. ZEJULA [Suspect]
     Active Substance: NIRAPARIB
     Dosage: 100 MG, QD
     Route: 048
     Dates: start: 20180114
  3. ZEJULA [Suspect]
     Active Substance: NIRAPARIB
     Indication: OVARIAN CANCER
     Dosage: 100 MG, 5 DAYS
     Route: 048
     Dates: start: 20171205
  4. ZEJULA [Suspect]
     Active Substance: NIRAPARIB
     Dosage: 100 MG, QD
     Route: 048
     Dates: end: 20180408
  5. ZEJULA [Suspect]
     Active Substance: NIRAPARIB
     Dosage: 200 MG, 10 DAYS
     Route: 048
     Dates: start: 20171210

REACTIONS (15)
  - Initial insomnia [Unknown]
  - Neoplasm progression [Not Recovered/Not Resolved]
  - Nausea [Not Recovered/Not Resolved]
  - Inappropriate schedule of drug administration [Unknown]
  - Constipation [Recovering/Resolving]
  - Haematocrit decreased [Unknown]
  - Blister [Recovered/Resolved]
  - Emotional distress [Not Recovered/Not Resolved]
  - Blood count abnormal [Not Recovered/Not Resolved]
  - White blood cell count decreased [Recovering/Resolving]
  - Heart rate increased [Recovered/Resolved]
  - Platelet count decreased [Not Recovered/Not Resolved]
  - Eastern Cooperative Oncology Group performance status [Unknown]
  - Intentional underdose [Not Recovered/Not Resolved]
  - Red blood cell count decreased [Not Recovered/Not Resolved]

NARRATIVE: CASE EVENT DATE: 20171205
